FAERS Safety Report 8583341-6 (Version None)
Quarter: 2012Q3

REPORT INFORMATION
  Report Type: 
  Country: None (occurrence: None)
  Receive Date: 20120809
  Receipt Date: 20120731
  Transmission Date: 20120928
  Serious: Yes (Other)
  Sender: FDA-Public Use
  Company Number: JP-ABBOTT-12P-087-0963499-00

PATIENT
  Age: 7 Year
  Sex: Male

DRUGS (9)
  1. PHENOBARBITAL TAB [Suspect]
     Indication: LENNOX-GASTAUT SYNDROME
  2. TOPIRAMATE [Suspect]
     Indication: LENNOX-GASTAUT SYNDROME
  3. PHENYTOIN [Suspect]
     Indication: LENNOX-GASTAUT SYNDROME
  4. LAMOTRIGINE [Suspect]
     Indication: LENNOX-GASTAUT SYNDROME
  5. VALPROIC ACID [Suspect]
     Indication: LENNOX-GASTAUT SYNDROME
  6. CLOBAZAM [Suspect]
     Indication: LENNOX-GASTAUT SYNDROME
  7. ETHOSUXIMIDE [Concomitant]
     Indication: LENNOX-GASTAUT SYNDROME
  8. ZONISAMIDE [Concomitant]
     Indication: LENNOX-GASTAUT SYNDROME
  9. CLONAZEPAM [Suspect]
     Indication: LENNOX-GASTAUT SYNDROME

REACTIONS (3)
  - FALL [None]
  - DRUG INEFFECTIVE [None]
  - CONVULSION [None]
